FAERS Safety Report 6702769-X (Version None)
Quarter: 2010Q2

REPORT INFORMATION
  Report Type: 
  Country: None (occurrence: None)
  Receive Date: 20100429
  Receipt Date: 20100419
  Transmission Date: 20101027
  Serious: Yes (Other)
  Sender: FDA-Public Use
  Company Number: MX-ELI_LILLY_AND_COMPANY-MX201004005464

PATIENT
  Sex: Female

DRUGS (1)
  1. FORTEO [Suspect]
     Dosage: UNK UNK, UNKNOWN
     Route: 065
     Dates: start: 20090801, end: 20100301

REACTIONS (3)
  - ABASIA [None]
  - DRUG INEFFECTIVE [None]
  - PAIN [None]
